FAERS Safety Report 9880938 (Version 1)
Quarter: 2014Q1

REPORT INFORMATION
  Report Type: Spontaneous
  Country: FR (occurrence: FR)
  Receive Date: 20140207
  Receipt Date: 20140207
  Transmission Date: 20141002
  Serious: Yes (Other)
  Sender: FDA-Public Use
  Company Number: FR-B.I. PHARMACEUTICALS,INC./RIDGEFIELD-2014-BI-04607FF

PATIENT
  Age: 87 Year
  Sex: Female

DRUGS (1)
  1. SIFROL [Suspect]
     Indication: RESTLESS LEGS SYNDROME
     Dates: start: 201310, end: 20140110

REACTIONS (1)
  - Cardiac failure [Not Recovered/Not Resolved]
